FAERS Safety Report 18813955 (Version 1)
Quarter: 2021Q1

REPORT INFORMATION
  Report Type: Spontaneous
  Country: US (occurrence: US)
  Receive Date: 20210201
  Receipt Date: 20210201
  Transmission Date: 20210419
  Serious: No
  Sender: FDA-Public Use
  Company Number: US-AUROBINDO-AUR-APL-2020-030432

PATIENT
  Age: 75 Year
  Sex: Male

DRUGS (3)
  1. GABAPENTIN. [Suspect]
     Active Substance: GABAPENTIN
     Indication: PRODUCT USED FOR UNKNOWN INDICATION
     Dosage: UNK
     Route: 065
  2. DULOXETINE DELAYED?RELEASE CAPSULES USP 20 MG [Suspect]
     Active Substance: DULOXETINE
     Indication: PRODUCT USED FOR UNKNOWN INDICATION
     Dosage: 20 MILLIGRAM
     Route: 065
     Dates: start: 20200508
  3. DULOXETINE DELAYED?RELEASE CAPSULES USP 20 MG [Suspect]
     Active Substance: DULOXETINE
     Dosage: 40 MILLIGRAM
     Route: 065

REACTIONS (6)
  - Panic attack [Unknown]
  - Abnormal behaviour [Unknown]
  - Logorrhoea [Unknown]
  - Tremor [Unknown]
  - Nausea [Unknown]
  - Fear [Unknown]

NARRATIVE: CASE EVENT DATE: 20200615
